FAERS Safety Report 7572932-7 (Version None)
Quarter: 2011Q2

REPORT INFORMATION
  Report Type: 
  Country: None (occurrence: None)
  Receive Date: 20110627
  Receipt Date: 20110617
  Transmission Date: 20111010
  Serious: Yes (Hospitalization, Other)
  Sender: FDA-Public Use
  Company Number: FR-JNJFOC-20110608746

PATIENT
  Sex: Male
  Weight: 59 kg

DRUGS (4)
  1. ABIRATERONE [Concomitant]
     Indication: PROSTATE CANCER
     Route: 048
  2. DURAGESIC-100 [Suspect]
     Indication: PAIN
     Route: 062
     Dates: start: 20100101
  3. PREDNISONE [Concomitant]
     Indication: PROSTATE CANCER
     Route: 048
     Dates: start: 20110504
  4. OMEPRAZOLE [Concomitant]
     Indication: PROSTATE CANCER
     Route: 048
     Dates: start: 20110504

REACTIONS (2)
  - HYPERCREATININAEMIA [None]
  - BACTERIAL INFECTION [None]
